FAERS Safety Report 25312940 (Version 1)
Quarter: 2025Q2

REPORT INFORMATION
  Report Type: Spontaneous
  Country: US (occurrence: None)
  Receive Date: 20250513
  Receipt Date: 20250513
  Transmission Date: 20250716
  Serious: Yes (Life-Threatening)
  Sender: FDA-CTU
  Company Number: None

PATIENT
  Age: 82 Year
  Sex: Male

DRUGS (2)
  1. APIXABAN [Suspect]
     Active Substance: APIXABAN
     Indication: Urticaria
     Dates: start: 20250207, end: 20250211
  2. APIXABAN [Suspect]
     Active Substance: APIXABAN
     Indication: Mitral valve replacement

REACTIONS (6)
  - Pruritus [None]
  - Urticaria [None]
  - Dehydration [None]
  - Rash pruritic [None]
  - Rash [None]
  - Rash [None]

NARRATIVE: CASE EVENT DATE: 20250211
